FAERS Safety Report 9014866 (Version 1)
Quarter: 2013Q1

REPORT INFORMATION
  Report Type: Spontaneous
  Country: US (occurrence: None)
  Receive Date: 20130109
  Receipt Date: 20130109
  Transmission Date: 20140127
  Serious: Yes (Other)
  Sender: FDA-Public Use
  Company Number: None

PATIENT
  Sex: Female
  Weight: 78.47 kg

DRUGS (1)
  1. GLUCOPHAGE [Suspect]

REACTIONS (3)
  - Blood glucose increased [None]
  - Glycosylated haemoglobin increased [None]
  - Blood follicle stimulating hormone increased [None]
